FAERS Safety Report 23431290 (Version 1)
Quarter: 2024Q1

REPORT INFORMATION
  Report Type: Spontaneous
  Country: CN (occurrence: CN)
  Receive Date: 20240123
  Receipt Date: 20240123
  Transmission Date: 20240410
  Serious: Yes (Other)
  Sender: FDA-Public Use
  Company Number: None

PATIENT
  Age: 54 Year
  Sex: Female
  Weight: 47 kg

DRUGS (3)
  1. MANNITOL [Suspect]
     Active Substance: MANNITOL
     Indication: Localised oedema
     Dosage: 200 ML ONCE DAILY (DOSAGE FORM: INJECTION)
     Route: 041
     Dates: start: 20240103, end: 20240103
  2. DEXAMETHASONE SODIUM PHOSPHATE [Suspect]
     Active Substance: DEXAMETHASONE PHOSPHATE\DEXAMETHASONE SODIUM PHOSPHATE
     Indication: Localised oedema
     Dosage: 5 MG ONCE DAILY, DILUTED IN 100 ML OF 0.9% SODIUM CHLORIDE
     Route: 041
     Dates: start: 20240103, end: 20240103
  3. SODIUM CHLORIDE [Suspect]
     Active Substance: SODIUM CHLORIDE
     Indication: Localised oedema
     Dosage: 100 ML ONCE DAILY, USED TO DILUTE 5 MG OF DEXAMETHASONE SODIUM PHOSPHATE
     Route: 041
     Dates: start: 20240103, end: 20240103

REACTIONS (1)
  - Migraine [Recovered/Resolved]

NARRATIVE: CASE EVENT DATE: 20240103
